FAERS Safety Report 6504530-8 (Version None)
Quarter: 2009Q4

REPORT INFORMATION
  Report Type: 
  Country: None (occurrence: None)
  Receive Date: 20091215
  Receipt Date: 20091204
  Transmission Date: 20100525
  Serious: Yes (Death)
  Sender: FDA-Public Use
  Company Number: 2009AC000084

PATIENT
  Age: 61 Year
  Sex: Male

DRUGS (25)
  1. DIGOXIN [Suspect]
     Dosage: PO
     Route: 048
     Dates: start: 20010118, end: 20060328
  2. DIGOXIN [Suspect]
     Dosage: 0.125 MG; QD; PO
     Route: 048
  3. LASIX [Concomitant]
  4. ECOTRIN ASA [Concomitant]
  5. ALLOPURINOL [Concomitant]
  6. COMBIVENT [Concomitant]
  7. ALTACE [Concomitant]
  8. NITROGLYCERIN [Concomitant]
  9. COLCHIINE [Concomitant]
  10. KLOR-CON [Concomitant]
  11. LORTAB [Concomitant]
  12. COREG [Concomitant]
  13. LEVAQUIN [Concomitant]
  14. LOVENOX [Concomitant]
  15. COUMADIN [Concomitant]
  16. NESIRITIDE [Concomitant]
  17. OXYGEN [Concomitant]
  18. ALBUTEROL [Concomitant]
  19. ATROVENT [Concomitant]
  20. NATRECOR [Concomitant]
  21. CAPTOPRIL [Concomitant]
  22. ALDACTONE [Concomitant]
  23. ALLOPERINOL [Concomitant]
  24. LANOXIN [Concomitant]
  25. ASPIRIN [Concomitant]

REACTIONS (40)
  - ASPARTATE AMINOTRANSFERASE INCREASED [None]
  - BACK PAIN [None]
  - BLOOD ALKALINE PHOSPHATASE INCREASED [None]
  - BUNDLE BRANCH BLOCK RIGHT [None]
  - CARDIAC FAILURE CONGESTIVE [None]
  - CARDIAC MURMUR [None]
  - CARDIOMEGALY [None]
  - CARDIOMYOPATHY [None]
  - CHEST PAIN [None]
  - CHRONOTROPIC INCOMPETENCE [None]
  - CONGESTIVE CARDIOMYOPATHY [None]
  - CORONARY ARTERY STENOSIS [None]
  - DYSPNOEA EXERTIONAL [None]
  - ECONOMIC PROBLEM [None]
  - FLATULENCE [None]
  - GOUTY ARTHRITIS [None]
  - HYPERKALAEMIA [None]
  - HYPOXIA [None]
  - INGUINAL HERNIA [None]
  - INJURY [None]
  - INTERNATIONAL NORMALISED RATIO INCREASED [None]
  - MITRAL VALVE INCOMPETENCE [None]
  - NECK PAIN [None]
  - NEPHROSCLEROSIS [None]
  - OXYGEN SATURATION DECREASED [None]
  - PNEUMONIA [None]
  - PRODUCTIVE COUGH [None]
  - PULMONARY MASS [None]
  - PYREXIA [None]
  - RENAL FAILURE [None]
  - RENAL FAILURE CHRONIC [None]
  - ROAD TRAFFIC ACCIDENT [None]
  - SINUS CONGESTION [None]
  - SINUS TACHYCARDIA [None]
  - SURGERY [None]
  - TRICUSPID VALVE INCOMPETENCE [None]
  - UNEVALUABLE EVENT [None]
  - VENTRICULAR EXTRASYSTOLES [None]
  - VENTRICULAR TACHYCARDIA [None]
  - WEIGHT DECREASED [None]
